FAERS Safety Report 4280357-5 (Version None)
Quarter: 2004Q1

REPORT INFORMATION
  Report Type: 
  Country: None (occurrence: None)
  Receive Date: 20040123
  Receipt Date: 20040114
  Transmission Date: 20041129
  Serious: Yes (Hospitalization, Other)
  Sender: FDA-Public Use
  Company Number: JP-JNJFOC-20031201566

PATIENT
  Age: 36 Year
  Sex: Male

DRUGS (14)
  1. RISPERDAL [Suspect]
     Indication: OBSESSIVE-COMPULSIVE DISORDER
     Dosage: SEE IMAGE
     Route: 048
     Dates: start: 20020604, end: 20030317
  2. RISPERDAL [Suspect]
     Indication: OBSESSIVE-COMPULSIVE DISORDER
     Dosage: SEE IMAGE
     Route: 048
     Dates: start: 20030311, end: 20030317
  3. RISPERDAL [Suspect]
     Indication: OBSESSIVE-COMPULSIVE DISORDER
     Dosage: SEE IMAGE
     Route: 048
     Dates: start: 20030318, end: 20030328
  4. RISPERDAL [Suspect]
     Indication: OBSESSIVE-COMPULSIVE DISORDER
     Dosage: SEE IMAGE
     Route: 048
     Dates: start: 20030329, end: 20030623
  5. RISPERDAL [Suspect]
     Indication: OBSESSIVE-COMPULSIVE DISORDER
     Dosage: SEE IMAGE
     Route: 048
     Dates: start: 20030624, end: 20030909
  6. RISPERDAL [Suspect]
     Indication: OBSESSIVE-COMPULSIVE DISORDER
     Dosage: SEE IMAGE
     Route: 048
     Dates: start: 20030910, end: 20031202
  7. RISPERDAL [Suspect]
     Indication: OBSESSIVE-COMPULSIVE DISORDER
     Dosage: SEE IMAGE
     Route: 048
     Dates: start: 20031203
  8. PAROXETINE HCL [Suspect]
     Indication: OBSESSIVE-COMPULSIVE DISORDER
     Dosage: SEE IMAGE
     Route: 048
     Dates: start: 20030910
  9. FLUNITRAZEPAM (FLUNITRAZEPAM) [Concomitant]
  10. VEGETAMIN-B (VEGETAMIN A) TABLETS [Concomitant]
  11. BIPERIDEN HYDROCHLORIDE TAB [Concomitant]
  12. COLD MEDICINE (COLD CAPSULES) TABLETS [Concomitant]
  13. DIAZEPAM [Concomitant]
  14. LACTATED RINGER'S SOLUTION (RINGER ^MERCK^) SOLUTION [Concomitant]

REACTIONS (9)
  - ASTHENIA [None]
  - BLOOD CREATINE PHOSPHOKINASE INCREASED [None]
  - DISEASE RECURRENCE [None]
  - GAIT DISTURBANCE [None]
  - IRRITABILITY [None]
  - MYOCLONUS [None]
  - OBSESSIVE-COMPULSIVE DISORDER [None]
  - SEROTONIN SYNDROME [None]
  - URINARY INCONTINENCE [None]
